FAERS Safety Report 14599595 (Version 1)
Quarter: 2018Q1

REPORT INFORMATION
  Report Type: Spontaneous
  Country: US (occurrence: US)
  Receive Date: 20180304
  Receipt Date: 20180304
  Transmission Date: 20180509
  Serious: Yes (Life-Threatening, Disabling, Other)
  Sender: FDA-Public Use
  Company Number: None

PATIENT
  Age: 41 Year
  Sex: Female
  Weight: 171 kg

DRUGS (8)
  1. SYNTHROID [Concomitant]
     Active Substance: LEVOTHYROXINE SODIUM
  2. DULOXETINE 30 MG [Suspect]
     Active Substance: DULOXETINE
     Indication: FIBROMYALGIA
     Dosage: ?          QUANTITY:3 CAPSULE(S);?
     Route: 048
     Dates: start: 20180208, end: 20180303
  3. MULTI VITAMIN [Concomitant]
     Active Substance: VITAMINS
  4. FEXOFENADINE [Concomitant]
     Active Substance: FEXOFENADINE\FEXOFENADINE HYDROCHLORIDE
  5. CYMBALTA [Concomitant]
     Active Substance: DULOXETINE HYDROCHLORIDE
  6. SINGULAIR [Concomitant]
     Active Substance: MONTELUKAST SODIUM
  7. DULOXETINE 30 MG [Suspect]
     Active Substance: DULOXETINE
     Indication: DEPRESSION
     Dosage: ?          QUANTITY:3 CAPSULE(S);?
     Route: 048
     Dates: start: 20180208, end: 20180303
  8. CONCERTA [Concomitant]
     Active Substance: METHYLPHENIDATE HYDROCHLORIDE

REACTIONS (15)
  - Hypoaesthesia [None]
  - Suicidal ideation [None]
  - Depression [None]
  - Withdrawal syndrome [None]
  - Nausea [None]
  - Headache [None]
  - Mood swings [None]
  - Product formulation issue [None]
  - Vision blurred [None]
  - Anxiety [None]
  - Threat of redundancy [None]
  - Pain [None]
  - Product substitution issue [None]
  - Thinking abnormal [None]
  - Dizziness [None]

NARRATIVE: CASE EVENT DATE: 20180302
